FAERS Safety Report 20316587 (Version 3)
Quarter: 2022Q4

REPORT INFORMATION
  Report Type: Other
  Country: BE (occurrence: DE)
  Receive Date: 20220110
  Receipt Date: 20221031
  Transmission Date: 20230112
  Serious: Yes (Death, Hospitalization)
  Sender: FDA-Public Use
  Company Number: BE-ROCHE-2993785

PATIENT
  Age: 50 Year
  Sex: Male

DRUGS (7)
  1. MYCOPHENOLATE MOFETIL [Suspect]
     Active Substance: MYCOPHENOLATE MOFETIL
     Indication: Immunosuppression
     Route: 065
  2. MYCOPHENOLATE MOFETIL [Suspect]
     Active Substance: MYCOPHENOLATE MOFETIL
     Indication: Prophylaxis against transplant rejection
  3. TACROLIMUS [Suspect]
     Active Substance: TACROLIMUS
     Indication: Immunosuppression
     Route: 065
  4. TACROLIMUS [Suspect]
     Active Substance: TACROLIMUS
     Indication: Prophylaxis against transplant rejection
  5. METHYLPREDNISOLONE [Suspect]
     Active Substance: METHYLPREDNISOLONE
     Indication: Immunosuppression
     Route: 065
  6. METHYLPREDNISOLONE [Suspect]
     Active Substance: METHYLPREDNISOLONE
     Indication: Prophylaxis against transplant rejection
     Dosage: MONOTHERAPY
     Route: 065
  7. CEMIPLIMAB [Concomitant]
     Active Substance: CEMIPLIMAB
     Indication: Squamous cell carcinoma of skin
     Dosage: 3 MILLIGRAM/KILOGRAM EVERY 2 WEEK

REACTIONS (16)
  - Ear haemorrhage [Fatal]
  - Confusional state [Fatal]
  - Metastases to bone [Fatal]
  - Metastases to bone [Fatal]
  - Headache [Fatal]
  - Headache [Fatal]
  - General physical health deterioration [Fatal]
  - General physical health deterioration [Fatal]
  - Basal cell carcinoma [Fatal]
  - Basal cell carcinoma [Fatal]
  - Dyspepsia [Fatal]
  - Dyspepsia [Fatal]
  - Pneumocephalus [Fatal]
  - Squamous cell carcinoma [Fatal]
  - Shock haemorrhagic [Fatal]
  - Haemorrhage [Fatal]

NARRATIVE: CASE EVENT DATE: 20170101
